FAERS Safety Report 6136359-7 (Version None)
Quarter: 2009Q1

REPORT INFORMATION
  Report Type: 
  Country: None (occurrence: None)
  Receive Date: 20090330
  Receipt Date: 20090325
  Transmission Date: 20090719
  Serious: Yes (Hospitalization)
  Sender: FDA-Public Use
  Company Number: JP-BAYER-200910899BYL

PATIENT
  Sex: Male
  Weight: 51 kg

DRUGS (7)
  1. NEXAVAR [Suspect]
     Indication: RENAL CELL CARCINOMA STAGE IV
     Dosage: UNIT DOSE: 200 MG
     Route: 048
     Dates: start: 20090216, end: 20090227
  2. NEXAVAR [Suspect]
     Dosage: UNIT DOSE: 200 MG
     Route: 048
     Dates: start: 20090309
  3. OMEPRAL [Concomitant]
     Route: 048
     Dates: start: 20090216
  4. MAGLAX [Concomitant]
     Route: 048
     Dates: start: 20090216
  5. ONEALFA [Concomitant]
     Route: 048
     Dates: start: 20090216
  6. THYRADIN S [Concomitant]
     Route: 048
     Dates: start: 20090216
  7. ZYLORIC [Concomitant]
     Route: 048
     Dates: start: 20090302, end: 20090313

REACTIONS (2)
  - C-REACTIVE PROTEIN INCREASED [None]
  - PYREXIA [None]
